FAERS Safety Report 8975200 (Version 1)
Quarter: 2012Q4

REPORT INFORMATION
  Report Type: 
  Country: US (occurrence: US)
  Receive Date: 20121219
  Receipt Date: 20121219
  Transmission Date: 20130627
  Serious: No
  Sender: FDA-Public Use
  Company Number: US-AMGEN-USASP2012073130

PATIENT
  Age: 79 Year
  Sex: Female
  Weight: 107.94 kg

DRUGS (20)
  1. PROLIA [Suspect]
     Indication: OSTEOPOROSIS POSTMENOPAUSAL
     Dosage: 60 mg, q6mo
     Route: 058
     Dates: start: 20110725, end: 20120511
  2. PROLIA [Suspect]
     Indication: OSTEOPOROSIS
  3. ZYLOPRIM [Concomitant]
     Dosage: 50 mg, qd
     Route: 048
  4. VITAMIN C                          /00008001/ [Concomitant]
     Dosage: 250 mg, qd
     Route: 048
     Dates: start: 20091119
  5. ASPIRIN LOW [Concomitant]
     Dosage: 81 mg, UNK
     Route: 048
     Dates: start: 20091119
  6. LIPITOR [Concomitant]
     Dosage: 40 mg, qd
     Route: 048
  7. OS-CAL [Concomitant]
     Dosage: 1250 mg, qd
     Route: 048
     Dates: start: 20091119
  8. COLACE [Concomitant]
     Indication: CONSTIPATION
     Dosage: 100 mg, bid
     Route: 048
     Dates: start: 20091119
  9. PEPCID                             /00706001/ [Concomitant]
     Indication: PEPTIC ULCER
     Dosage: 20 mg, bid
     Route: 048
     Dates: start: 20091119
  10. FERROUS SULFATE [Concomitant]
     Dosage: 325 mg, qd
     Route: 048
     Dates: start: 20091119
  11. LASIX                              /00032601/ [Concomitant]
     Dosage: 40 mg, qd
     Route: 048
  12. HEPARIN PF NOVO [Concomitant]
     Dosage: 5000 IU, q8h
     Route: 058
     Dates: start: 20091119
  13. NOVOLOG [Concomitant]
     Dosage: 100 IU, UNK
     Route: 058
     Dates: start: 20091119
  14. COZAAR [Concomitant]
     Dosage: 100 mg, qd
     Route: 048
  15. LOPRESSOR [Concomitant]
     Dosage: 50 mg, bid
     Route: 048
  16. NITROSTAT [Concomitant]
     Indication: CHEST PAIN
     Dosage: 0.4 mg, prn
     Route: 060
  17. PERCOCET                           /00446701/ [Concomitant]
     Indication: PAIN
     Dosage: UNK UNK, prn
     Route: 048
     Dates: start: 20091119
  18. PAXIL [Concomitant]
     Dosage: 2 mg, qd
     Route: 048
  19. ACTOS [Concomitant]
     Dosage: 30 mg, qd
     Route: 048
  20. KLOR-CON M20 [Concomitant]
     Dosage: 20 mEq, qod
     Route: 048

REACTIONS (7)
  - Skin fragility [Not Recovered/Not Resolved]
  - Excoriation [Not Recovered/Not Resolved]
  - Skin atrophy [Not Recovered/Not Resolved]
  - Skin disorder [Not Recovered/Not Resolved]
  - Skin infection [Not Recovered/Not Resolved]
  - Rash [Not Recovered/Not Resolved]
  - Erythema [Not Recovered/Not Resolved]
